FAERS Safety Report 5721871-2 (Version None)
Quarter: 2008Q2

REPORT INFORMATION
  Report Type: 
  Country: None (occurrence: None)
  Receive Date: 20080429
  Receipt Date: 20080419
  Transmission Date: 20081010
  Serious: Yes (Other)
  Sender: FDA-Public Use
  Company Number: US-PFIZER INC-2008035137

PATIENT
  Sex: Female

DRUGS (1)
  1. CHANTIX [Suspect]

REACTIONS (8)
  - FACIAL PALSY [None]
  - HYPOAESTHESIA [None]
  - HYPOAESTHESIA FACIAL [None]
  - PAIN IN EXTREMITY [None]
  - PARAESTHESIA [None]
  - PERIPHERAL COLDNESS [None]
  - THINKING ABNORMAL [None]
  - TONGUE PARALYSIS [None]
